FAERS Safety Report 7633921-7 (Version None)
Quarter: 2011Q3

REPORT INFORMATION
  Report Type: 
  Country: None (occurrence: None)
  Receive Date: 20110725
  Receipt Date: 20110714
  Transmission Date: 20111222
  Serious: Yes (Hospitalization, Other)
  Sender: FDA-Public Use
  Company Number: BE-JNJFOC-20110106429

PATIENT
  Sex: Male
  Weight: 95 kg

DRUGS (11)
  1. METHOTREXATE [Suspect]
     Indication: RHEUMATOID ARTHRITIS
     Route: 048
     Dates: start: 20060922, end: 20080731
  2. LIPITOR [Concomitant]
     Route: 048
     Dates: start: 20010101
  3. XENICAL [Concomitant]
     Route: 048
     Dates: start: 20020101
  4. METHOTREXATE [Concomitant]
     Route: 048
     Dates: start: 20100403
  5. DICLOFENAC SODIUM [Concomitant]
     Route: 048
     Dates: start: 20060701
  6. TRAMADOL HCL [Concomitant]
     Route: 048
     Dates: start: 20060701
  7. FOLIC ACID [Concomitant]
     Route: 048
     Dates: start: 20060923
  8. OMEPRAZOLE [Concomitant]
     Route: 048
     Dates: start: 20061101
  9. GOLIMUMAB [Suspect]
     Indication: RHEUMATOID ARTHRITIS
     Route: 058
     Dates: start: 20060922
  10. DAFALGAN CODEINE [Concomitant]
     Route: 048
     Dates: start: 20060801
  11. GOLIMUMAB [Suspect]
     Route: 058
     Dates: start: 20100721

REACTIONS (2)
  - HAEMATOMA [None]
  - LUMBAR SPINAL STENOSIS [None]
